FAERS Safety Report 17811416 (Version 7)
Quarter: 2022Q2

REPORT INFORMATION
  Report Type: Spontaneous
  Country: US (occurrence: US)
  Receive Date: 20200521
  Receipt Date: 20220620
  Transmission Date: 20220721
  Serious: Yes (Other)
  Sender: FDA-Public Use
  Company Number: US-PFIZER INC-2020201541

PATIENT
  Age: 67 Year
  Sex: Female

DRUGS (1)
  1. XELJANZ XR [Suspect]
     Active Substance: TOFACITINIB CITRATE
     Dosage: 11 MG, DAILY

REACTIONS (7)
  - Oral surgery [Unknown]
  - Foot fracture [Unknown]
  - Dental caries [Unknown]
  - Joint swelling [Unknown]
  - Pain [Unknown]
  - Illness [Unknown]
  - Pyrexia [Unknown]
